FAERS Safety Report 20049574 (Version 2)
Quarter: 2021Q4

REPORT INFORMATION
  Report Type: Spontaneous
  Country: US (occurrence: None)
  Receive Date: 20211109
  Receipt Date: 20211230
  Transmission Date: 20220303
  Serious: No
  Sender: FDA-Public Use
  Company Number: 2021A781967

PATIENT
  Age: 73 Year
  Sex: Male
  Weight: 93 kg

DRUGS (4)
  1. BYDUREON BCISE [Suspect]
     Active Substance: EXENATIDE
     Indication: Type 2 diabetes mellitus
     Route: 058
  2. BYETTA [Concomitant]
     Active Substance: EXENATIDE
     Indication: Type 2 diabetes mellitus
     Dosage: UNKNOWN
     Route: 058
  3. LISINOPRIL [Concomitant]
     Active Substance: LISINOPRIL
  4. METOPROLOL [Concomitant]
     Active Substance: METOPROLOL

REACTIONS (6)
  - Injection site nodule [Not Recovered/Not Resolved]
  - Injection site haemorrhage [Recovered/Resolved]
  - Injection site bruising [Recovered/Resolved]
  - Device malfunction [Unknown]
  - Device leakage [Unknown]
  - Needle issue [Unknown]

NARRATIVE: CASE EVENT DATE: 20210101
